FAERS Safety Report 5320144-X (Version None)
Quarter: 2007Q2

REPORT INFORMATION
  Report Type: 
  Country: None (occurrence: None)
  Receive Date: 20070503
  Receipt Date: 20070418
  Transmission Date: 20071010
  Serious: Yes (Hospitalization)
  Sender: FDA-Public Use
  Company Number: 2007000708

PATIENT
  Age: 75 Year
  Sex: Female

DRUGS (6)
  1. ERLOTINIB (TABLET) [Suspect]
     Indication: COLON CANCER METASTATIC
     Dosage: 150 MG (QD), ORAL
     Route: 048
     Dates: start: 20061211
  2. TOPOTECAN (TOPOTECAN) [Suspect]
     Indication: COLON CANCER METASTATIC
     Dosage: 2.75 MG (DAYS 1-5.), INTRAVENOUS
     Route: 042
     Dates: start: 20061211
  3. ARANESP [Concomitant]
  4. LEVAQUIN [Concomitant]
  5. POTASSIUM (POTASSIUM) [Concomitant]
  6. NEULASTA [Concomitant]

REACTIONS (6)
  - ASTHENIA [None]
  - CLAVICLE FRACTURE [None]
  - CONDITION AGGRAVATED [None]
  - FALL [None]
  - FATIGUE [None]
  - PAIN [None]
